FAERS Safety Report 4701086-7 (Version None)
Quarter: 2005Q2

REPORT INFORMATION
  Report Type: 
  Country: None (occurrence: None)
  Receive Date: 20050624
  Receipt Date: 20040812
  Transmission Date: 20051028
  Serious: Yes (Hospitalization)
  Sender: FDA-Public Use
  Company Number: 202778

PATIENT
  Age: 57 Year
  Sex: Female

DRUGS (4)
  1. AVONEX [Suspect]
     Indication: MULTIPLE SCLEROSIS
     Dosage: 30 UG;QW; IM
     Route: 030
     Dates: start: 19990101, end: 20020101
  2. AVONEX [Suspect]
     Indication: MULTIPLE SCLEROSIS
     Dosage: 30 UG;QW; IM
     Route: 030
     Dates: start: 20030101
  3. LEVOTHYROX [Concomitant]
  4. LEXOMIL [Concomitant]

REACTIONS (14)
  - BALANCE DISORDER [None]
  - CONSTIPATION [None]
  - DIFFICULTY IN WALKING [None]
  - FATIGUE [None]
  - GYNAECOLOGICAL EXAMINATION [None]
  - HAEMORRHAGE [None]
  - HORMONE REPLACEMENT THERAPY [None]
  - INFLUENZA LIKE ILLNESS [None]
  - INSOMNIA [None]
  - MENOPAUSAL DISORDER [None]
  - MULTIPLE SCLEROSIS RELAPSE [None]
  - POST PROCEDURAL COMPLICATION [None]
  - SENSORY LOSS [None]
  - TENDONITIS [None]
